FAERS Safety Report 6617054-4 (Version None)
Quarter: 2010Q1

REPORT INFORMATION
  Report Type: 
  Country: None (occurrence: None)
  Receive Date: 20100306
  Receipt Date: 20100224
  Transmission Date: 20100710
  Serious: Yes (Other)
  Sender: FDA-Public Use
  Company Number: US-JNJFOC-20100201101

PATIENT
  Sex: Female
  Weight: 50.8 kg

DRUGS (4)
  1. EXTRA STRENGTH TYLENOL [Suspect]
     Indication: HEADACHE
     Route: 048
  2. EXTRA STRENGTH TYLENOL [Suspect]
     Indication: FIBROMYALGIA
     Route: 048
  3. PHENOBARB [Concomitant]
     Indication: CONVULSION PROPHYLAXIS
  4. DIAZEPAM [Concomitant]
     Indication: CONVULSION PROPHYLAXIS

REACTIONS (7)
  - ABDOMINAL PAIN UPPER [None]
  - DIARRHOEA HAEMORRHAGIC [None]
  - GASTROENTERITIS VIRAL [None]
  - NAUSEA [None]
  - PRODUCT ODOUR ABNORMAL [None]
  - VOMITING [None]
  - WEIGHT DECREASED [None]
